FAERS Safety Report 8055374-X (Version None)
Quarter: 2012Q1

REPORT INFORMATION
  Report Type: 
  Country: None (occurrence: None)
  Receive Date: 20120119
  Receipt Date: 20120117
  Transmission Date: 20120608
  Serious: Yes (Death, Hospitalization)
  Sender: FDA-Public Use
  Company Number: PHEH2011US009489

PATIENT
  Sex: Female

DRUGS (2)
  1. EXJADE [Suspect]
     Dosage: 500 MG, BID
     Route: 048
  2. EXJADE [Suspect]
     Indication: BLOOD IRON INCREASED
     Dosage: 500 MG, DAILY
     Route: 048
     Dates: start: 20110913

REACTIONS (1)
  - DEATH [None]
